FAERS Safety Report 5234472-X (Version None)
Quarter: 2007Q1

REPORT INFORMATION
  Report Type: 
  Country: None (occurrence: None)
  Receive Date: 20070209
  Receipt Date: 20070208
  Transmission Date: 20070707
  Serious: Yes (Other)
  Sender: FDA-Public Use
  Company Number: DE-GLAXOSMITHKLINE-D0051871A

PATIENT
  Age: 17 Year
  Sex: Female
  Weight: 55 kg

DRUGS (4)
  1. FLUTICASONE PROPIONATE [Suspect]
     Indication: ASTHMA
     Dosage: 500MCG TWICE PER DAY
     Route: 065
     Dates: start: 20061123
  2. SEREVENT [Suspect]
     Indication: ASTHMA
     Dosage: 25MCG TWICE PER DAY
     Route: 065
     Dates: start: 20061123
  3. VIANI [Suspect]
     Indication: ASTHMA
     Dosage: 300MCG UNKNOWN
     Route: 065
     Dates: start: 20060323, end: 20061122
  4. VIANI FORTE [Suspect]
     Route: 065

REACTIONS (7)
  - AGGRESSION [None]
  - DISORIENTATION [None]
  - DRUG INEFFECTIVE [None]
  - HEART RATE INCREASED [None]
  - MEMORY IMPAIRMENT [None]
  - NERVOUS SYSTEM DISORDER [None]
  - PERSONALITY CHANGE [None]
